FAERS Safety Report 5071541-1 (Version None)
Quarter: 2006Q3

REPORT INFORMATION
  Report Type: 
  Country: None (occurrence: None)
  Receive Date: 20060803
  Receipt Date: 20060803
  Transmission Date: 20061208
  Serious: Yes (Hospitalization)
  Sender: FDA-Public Use
  Company Number: None

PATIENT
  Age: 85 Year
  Sex: Male
  Weight: 83.5 kg

DRUGS (3)
  1. METOLAZONE [Suspect]
     Indication: OEDEMA
     Dosage: 2.5 MG PO EVERY OTHER DAY
     Route: 048
     Dates: start: 20060223, end: 20060427
  2. FUROSEMIDE [Suspect]
     Indication: OEDEMA
     Dosage: 80 MG PO DAILY
     Route: 048
     Dates: start: 20060117, end: 20060427
  3. LISINOPRIL [Suspect]
     Indication: HYPERTENSION
     Dosage: 5 MG PO DAILY
     Route: 048
     Dates: start: 20051230, end: 20060427

REACTIONS (1)
  - RENAL FAILURE CHRONIC [None]
